FAERS Safety Report 10048046 (Version 5)
Quarter: 2014Q2

REPORT INFORMATION
  Report Type: Spontaneous
  Country: JP (occurrence: JP)
  Receive Date: 20140331
  Receipt Date: 20140429
  Transmission Date: 20141212
  Serious: Yes (Hospitalization, Other)
  Sender: FDA-Public Use
  Company Number: JP-PFIZER INC-2014074121

PATIENT
  Age: 76 Year
  Sex: Male
  Weight: 67.05 kg

DRUGS (19)
  1. EPLERENONE [Suspect]
     Indication: CARDIAC FAILURE CHRONIC
     Dosage: 25 MG, ALTERNATE DAY
     Route: 048
     Dates: start: 20120807, end: 20120904
  2. EPLERENONE [Suspect]
     Dosage: 25 MG, 1X/DAY
     Route: 048
     Dates: start: 20120905, end: 20120920
  3. WARFARIN [Concomitant]
     Indication: THROMBOSIS PROPHYLAXIS
     Dosage: 1 MG, DAILY
     Route: 048
     Dates: start: 20120522
  4. LUPRAC [Concomitant]
     Indication: CARDIAC FAILURE
     Dosage: 8 MG, DAILY
     Route: 048
     Dates: start: 20120507
  5. MEXITIL [Concomitant]
     Indication: ARRHYTHMIA
     Dosage: 150 MG, DAILY
     Route: 048
     Dates: start: 20120502
  6. ANCARON [Concomitant]
     Indication: ARRHYTHMIA
     Dosage: 150 MG, DAILY
     Route: 048
     Dates: start: 20121018
  7. MUCOSTA [Concomitant]
     Indication: PROPHYLAXIS AGAINST GASTROINTESTINAL ULCER
     Dosage: 300 MG, DAILY
     Route: 048
     Dates: start: 20120502
  8. ONBREZ [Concomitant]
     Indication: CHRONIC OBSTRUCTIVE PULMONARY DISEASE
     Dosage: ONCE DAILY
     Route: 055
  9. SPIRIVA [Concomitant]
     Indication: CHRONIC OBSTRUCTIVE PULMONARY DISEASE
     Dosage: ONCE DAILY
     Route: 055
  10. ISODINE [Concomitant]
     Indication: PROPHYLAXIS
     Dosage: UNK
  11. LASIX [Concomitant]
     Indication: CARDIAC FAILURE
     Dosage: 60 MG, DAILY
     Route: 048
     Dates: start: 20120502
  12. AMLODIPINE [Concomitant]
     Indication: HYPERTENSION
     Dosage: 5 MG, DAILY
     Route: 048
     Dates: start: 20120516
  13. TANATRIL [Concomitant]
     Indication: HYPERTENSION
     Dosage: 5 MG, DAILY
     Route: 048
     Dates: start: 20120502
  14. FRANDOL [Concomitant]
     Indication: PROPHYLAXIS
     Dosage: 40 MG, 1X/DAY
     Route: 062
     Dates: start: 20120502
  15. TULOBUTEROL HYDROCHLORIDE [Concomitant]
     Indication: ASTHMA
     Dosage: 2 MG, 1X/DAY
     Route: 062
     Dates: start: 20120502
  16. SOLANAX [Concomitant]
     Indication: INSOMNIA
     Dosage: 0.4 MG, DAILY
     Route: 048
  17. THEODUR [Concomitant]
     Indication: ASTHMA
     Dosage: 200 MG, DAILY
     Route: 048
  18. KARY UNI [Concomitant]
     Indication: CATARACT
     Dosage: 2X/DAY IN THE LEFT EYE
     Route: 047
  19. MULCHINA [Concomitant]
     Indication: KERATOPATHY
     Dosage: 2X/DAY IN THE RIGHT EYE
     Route: 047

REACTIONS (5)
  - Ventricular tachycardia [Recovered/Resolved]
  - Depressed level of consciousness [Recovered/Resolved]
  - Respiratory arrest [Recovered/Resolved]
  - Cardiac failure chronic [Recovered/Resolved]
  - Dyspnoea [Unknown]
